FAERS Safety Report 7785010-9 (Version None)
Quarter: 2011Q3

REPORT INFORMATION
  Report Type: 
  Country: None (occurrence: None)
  Receive Date: 20110929
  Receipt Date: 20110913
  Transmission Date: 20111222
  Serious: Yes (Death, Life-Threatening, Hospitalization)
  Sender: FDA-Public Use
  Company Number: US-ELI_LILLY_AND_COMPANY-06-02-08680

PATIENT
  Sex: Female
  Weight: 42.812 kg

DRUGS (10)
  1. PEMETREXED [Suspect]
     Indication: NON-SMALL CELL LUNG CANCER METASTATIC
     Dosage: 685 MG, UNK
     Route: 042
     Dates: start: 20060511
  2. ZOFRAN [Concomitant]
     Dosage: 8 MG, EVERY 8 HRS PRN
  3. TESSALON [Concomitant]
     Dosage: 100 MG, TID
  4. OXYCODONE [Concomitant]
     Dosage: 1 DF, 1 TO 2 EVERY 4 HOURS PRN
  5. LORAZEPAM [Concomitant]
     Dosage: 0.5 MG, TID
     Route: 048
  6. RED BLOOD CELLS, CONCENTRATED [Concomitant]
     Dosage: 3 U, UNK
     Route: 042
  7. PRILOSEC [Concomitant]
     Dosage: 20 MG, QD
  8. FLONASE [Concomitant]
     Dosage: 1 DF, 1 TO 2 PUFFS DAILY
  9. M.V.I. [Concomitant]
     Dosage: 1 TABLET, UNK
     Route: 048
  10. FOLIC ACID [Concomitant]
     Dosage: 1 MG, QD
     Route: 048

REACTIONS (4)
  - HYPOXIA [None]
  - PNEUMONIA [None]
  - DIARRHOEA [None]
  - NEUTROPENIA [None]
